FAERS Safety Report 20668249 (Version 1)
Quarter: 2022Q2

REPORT INFORMATION
  Report Type: Report from Study
  Country: IT (occurrence: IT)
  Receive Date: 20220404
  Receipt Date: 20220404
  Transmission Date: 20220721
  Serious: Yes (Other)
  Sender: FDA-Public Use
  Company Number: None

PATIENT
  Age: 70 Year
  Sex: Male
  Weight: 75 kg

DRUGS (6)
  1. ULTRAVIST [Suspect]
     Active Substance: IOPROMIDE
     Indication: Computerised tomogram abdomen
     Dosage: 7.5 ML
     Route: 040
     Dates: start: 20210920, end: 20210920
  2. CETIRIZINA (CETIREX) [Concomitant]
     Indication: Allergy prophylaxis
     Route: 048
     Dates: start: 20210917, end: 20210920
  3. PREDNISONE [Concomitant]
     Active Substance: PREDNISONE
     Indication: Allergy prophylaxis
     Route: 048
     Dates: start: 20210919, end: 20210920
  4. MYCOSTATIN [Concomitant]
     Active Substance: NYSTATIN
     Dosage: UNK
     Route: 048
     Dates: start: 20220310, end: 20220310
  5. SYMBICORT [Concomitant]
     Active Substance: BUDESONIDE\FORMOTEROL FUMARATE DIHYDRATE
     Indication: Asthma
     Route: 055
     Dates: end: 20220310
  6. ALLOPURINOL [Concomitant]
     Active Substance: ALLOPURINOL
     Indication: Gouty arthritis
     Route: 048
     Dates: end: 20220310

REACTIONS (3)
  - Throat tightness [Recovered/Resolved]
  - Nasal mucosal disorder [Recovered/Resolved]
  - Erythema [Recovered/Resolved]

NARRATIVE: CASE EVENT DATE: 20210920
